FAERS Safety Report 17766342 (Version 3)
Quarter: 2020Q2

REPORT INFORMATION
  Report Type: Report from Study
  Country: None (occurrence: CZ)
  Receive Date: 20200511
  Receipt Date: 20200617
  Transmission Date: 20200714
  Serious: Yes (Hospitalization)
  Sender: FDA-Public Use
  Company Number: CZ-ABBVIE-20K-217-3394554-00

PATIENT
  Age: 46 Year
  Sex: Male

DRUGS (4)
  1. HUMIRA [Suspect]
     Active Substance: ADALIMUMAB
     Route: 058
     Dates: start: 20190617, end: 20191209
  2. LAGOSA [Concomitant]
     Active Substance: DIETARY SUPPLEMENT\HERBALS\MILK THISTLE
     Indication: PRODUCT USED FOR UNKNOWN INDICATION
  3. HUMIRA [Suspect]
     Active Substance: ADALIMUMAB
     Route: 058
     Dates: start: 20200206
  4. HUMIRA [Suspect]
     Active Substance: ADALIMUMAB
     Indication: PSORIASIS
     Route: 058
     Dates: start: 20170515, end: 20181126

REACTIONS (7)
  - Anaemia macrocytic [Unknown]
  - Nephritic syndrome [Unknown]
  - Leptospirosis [Unknown]
  - Renal disorder [Recovering/Resolving]
  - Hepatic lesion [Recovered/Resolved with Sequelae]
  - Animal bite [Unknown]
  - Sepsis [Unknown]

NARRATIVE: CASE EVENT DATE: 201912
